FAERS Safety Report 11205152 (Version 1)
Quarter: 2015Q2

REPORT INFORMATION
  Report Type: Spontaneous
  Country: US (occurrence: US)
  Receive Date: 20150622
  Receipt Date: 20150622
  Transmission Date: 20150821
  Serious: Yes (Other)
  Sender: FDA-Public Use
  Company Number: US-JNJFOC-20150609692

PATIENT
  Sex: Male

DRUGS (1)
  1. RISPERDAL [Suspect]
     Active Substance: RISPERIDONE
     Indication: PRODUCT USED FOR UNKNOWN INDICATION
     Route: 048

REACTIONS (6)
  - Intervertebral disc protrusion [Unknown]
  - Adverse drug reaction [Unknown]
  - Spinal fracture [Unknown]
  - Accident at work [Unknown]
  - Surgery [Unknown]
  - Gynaecomastia [Unknown]
